FAERS Safety Report 4574455-6 (Version None)
Quarter: 2005Q1

REPORT INFORMATION
  Report Type: 
  Country: None (occurrence: None)
  Receive Date: 20050204
  Receipt Date: 20050121
  Transmission Date: 20050727
  Serious: Yes (Other)
  Sender: FDA-Public Use
  Company Number: 2004059295

PATIENT
  Sex: Female
  Weight: 80.7403 kg

DRUGS (14)
  1. NEURONTIN [Suspect]
     Indication: POLYNEUROPATHY
     Dosage: 1800 MG (1 D), ORAL
     Route: 048
     Dates: start: 20020101, end: 20040101
  2. ZYRTEC-D 12 HOUR [Suspect]
     Indication: HYPERSENSITIVITY
     Dosage: 2 IN 1 D
  3. MIRAPEX [Suspect]
     Indication: RESTLESS LEGS SYNDROME
     Dosage: 2 IN 1 D
  4. CLONAZEPAM [Suspect]
     Indication: ANXIETY
     Dosage: 2 IN 1 D
  5. MIRTAZAPINE [Suspect]
     Indication: ILL-DEFINED DISORDER
  6. AMITRIPTYLINE HCL [Suspect]
     Indication: ILL-DEFINED DISORDER
  7. MONTELUKAST SODIUM (MONTELUKAST SODIUM) [Concomitant]
  8. COMBIVENT [Concomitant]
  9. MIRTAZAPINE [Concomitant]
  10. ESOMEPRAZOLE (ESOMEPRAZOLE) [Concomitant]
  11. COMBIVENT [Concomitant]
  12. SALBUTAMOL (SALBUTAMOL) [Concomitant]
  13. CALAMINE/CAMPHOR/DIPHENHYDRAMINE (CALAMINE, CAMPHOR, DIPHENHYDRAMINE) [Concomitant]
  14. BUPROPION HYDROCHLORIDE [Concomitant]

REACTIONS (11)
  - AMNESIA [None]
  - ANXIETY [None]
  - ASTHMA [None]
  - BALANCE DISORDER [None]
  - CHRONIC OBSTRUCTIVE PULMONARY DISEASE [None]
  - CONDITION AGGRAVATED [None]
  - DISTURBANCE IN ATTENTION [None]
  - DIZZINESS [None]
  - MULTIPLE ALLERGIES [None]
  - SINUS DISORDER [None]
  - TOOTH EXTRACTION [None]
